FAERS Safety Report 10645557 (Version 1)
Quarter: 2014Q4

REPORT INFORMATION
  Report Type: Spontaneous
  Country: US (occurrence: None)
  Receive Date: 20141210
  Receipt Date: 20141210
  Transmission Date: 20150529
  Serious: Yes (Disabling)
  Sender: FDA-Public Use
  Company Number: None

PATIENT
  Age: 33 Year
  Sex: Female
  Weight: 102.06 kg

DRUGS (1)
  1. MIRENA [Suspect]
     Active Substance: LEVONORGESTREL

REACTIONS (8)
  - Psoriatic arthropathy [None]
  - Fibromyalgia [None]
  - Microcytic anaemia [None]
  - Insomnia [None]
  - Joint injury [None]
  - Joint swelling [None]
  - Menorrhagia [None]
  - Bone pain [None]

NARRATIVE: CASE EVENT DATE: 20140217
